FAERS Safety Report 8590270-0 (Version None)
Quarter: 2012Q3

REPORT INFORMATION
  Report Type: 
  Country: None (occurrence: None)
  Receive Date: 20120813
  Receipt Date: 20120803
  Transmission Date: 20120928
  Serious: Yes (Congenital Anomaly)
  Sender: FDA-Public Use
  Company Number: US-VIIV HEALTHCARE LIMITED-A0988699A

PATIENT
  Sex: Male
  Weight: 2.6 kg

DRUGS (2)
  1. COMBIVIR [Suspect]
     Indication: ANTIVIRAL TREATMENT
     Dosage: 2TAB PER DAY
     Route: 064
     Dates: start: 20090707
  2. ISENTRESS [Suspect]
     Indication: ANTIVIRAL TREATMENT
     Dosage: 800MG PER DAY
     Route: 064
     Dates: start: 20090707

REACTIONS (6)
  - FACIAL ASYMMETRY [None]
  - NASAL DISORDER [None]
  - MICROSTOMIA [None]
  - CONGENITAL OSTEODYSTROPHY [None]
  - LOW SET EARS [None]
  - FOETAL EXPOSURE DURING PREGNANCY [None]
